FAERS Safety Report 23718041 (Version 1)
Quarter: 2024Q2

REPORT INFORMATION
  Report Type: Spontaneous
  Country: US (occurrence: US)
  Receive Date: 20240408
  Receipt Date: 20240408
  Transmission Date: 20240715
  Serious: Yes (Other)
  Sender: FDA-Public Use
  Company Number: US-SANDOZ-SDZ2024US036423

PATIENT
  Age: 5 Year
  Sex: Male

DRUGS (7)
  1. AMOXICILLIN [Suspect]
     Active Substance: AMOXICILLIN
     Indication: Campylobacter infection
     Dosage: UNK
     Route: 065
  2. AMOXICILLIN [Suspect]
     Active Substance: AMOXICILLIN
     Indication: Helicobacter infection
  3. CIPROFLOXACIN [Suspect]
     Active Substance: CIPROFLOXACIN
     Indication: Campylobacter infection
     Dosage: UNK
     Route: 048
  4. CIPROFLOXACIN [Suspect]
     Active Substance: CIPROFLOXACIN
     Indication: Helicobacter infection
  5. DOXYCYCLINE [Suspect]
     Active Substance: DOXYCYCLINE
     Indication: Product used for unknown indication
     Dosage: UNK
     Route: 048
  6. ERTAPENEM [Suspect]
     Active Substance: ERTAPENEM
     Indication: Campylobacter infection
     Dosage: UNK
     Route: 042
  7. ERTAPENEM [Suspect]
     Active Substance: ERTAPENEM
     Indication: Helicobacter infection

REACTIONS (2)
  - Neutropenia [Recovered/Resolved]
  - Toxicity to various agents [Recovered/Resolved]
